FAERS Safety Report 10039382 (Version 1)
Quarter: 2014Q1

REPORT INFORMATION
  Report Type: Spontaneous
  Country: US (occurrence: None)
  Receive Date: 20140318
  Receipt Date: 20140318
  Transmission Date: 20141002
  Serious: Yes (Other)
  Sender: FDA-Public Use
  Company Number: 2014CT000011

PATIENT
  Sex: Female

DRUGS (1)
  1. KORLYM [Suspect]
     Indication: OVARIAN CANCER
     Dates: start: 201401

REACTIONS (2)
  - Pelvic pain [None]
  - Myalgia [None]
